FAERS Safety Report 19375534 (Version 1)
Quarter: 2021Q2

REPORT INFORMATION
  Report Type: Spontaneous
  Country: US (occurrence: US)
  Receive Date: 20210604
  Receipt Date: 20210604
  Transmission Date: 20210717
  Serious: Yes (Hospitalization)
  Sender: FDA-Public Use
  Company Number: US-SPECGX-T202101426

PATIENT
  Age: 65 Year
  Sex: Female

DRUGS (1)
  1. PAMELOR [Suspect]
     Active Substance: NORTRIPTYLINE HYDROCHLORIDE
     Indication: PRODUCT USED FOR UNKNOWN INDICATION
     Dosage: UNK
     Route: 065

REACTIONS (8)
  - Electrocardiogram QRS complex prolonged [Unknown]
  - Brain injury [Unknown]
  - Bradycardia [Unknown]
  - Intentional overdose [Unknown]
  - Pulseless electrical activity [Unknown]
  - Epilepsy [Unknown]
  - Tachycardia [Unknown]
  - Hypotension [Unknown]
